FAERS Safety Report 21582663 (Version 2)
Quarter: 2022Q4

REPORT INFORMATION
  Report Type: Spontaneous
  Country: TR (occurrence: TR)
  Receive Date: 20221111
  Receipt Date: 20221203
  Transmission Date: 20230112
  Serious: Yes (Life-Threatening, Hospitalization, Other)
  Sender: FDA-Public Use
  Company Number: TR-ASTELLAS-2022US020983

PATIENT
  Age: 58 Year
  Sex: Male
  Weight: 70 kg

DRUGS (4)
  1. MYCOPHENOLATE MOFETIL [Suspect]
     Active Substance: MYCOPHENOLATE MOFETIL
     Indication: Immunosuppressant drug therapy
  2. TACROLIMUS [Suspect]
     Active Substance: TACROLIMUS
     Indication: Immunosuppressant drug therapy
     Dosage: REDUCED DOSE
  3. PREDNISOLONE [Suspect]
     Active Substance: PREDNISOLONE
     Indication: Immunosuppressant drug therapy
     Dosage: STRENGTH: 10 MG
  4. TACROLIMUS [Suspect]
     Active Substance: TACROLIMUS
     Indication: Immunosuppressant drug therapy
     Dosage: 7-12 UG/L

REACTIONS (3)
  - Human herpesvirus 8 infection [Recovered/Resolved]
  - Kaposi^s sarcoma [Recovered/Resolved]
  - Respiratory failure [Recovered/Resolved]
